FAERS Safety Report 25098663 (Version 1)
Quarter: 2025Q1

REPORT INFORMATION
  Report Type: Spontaneous
  Country: US (occurrence: US)
  Receive Date: 20250320
  Receipt Date: 20250320
  Transmission Date: 20250409
  Serious: No
  Sender: ROCHE
  Company Number: US-ROCHE-10000231332

PATIENT
  Age: 62 Year
  Sex: Female

DRUGS (1)
  1. ACTEMRA ACTPEN [Suspect]
     Active Substance: TOCILIZUMAB
     Indication: Dermatomyositis
     Route: 058

REACTIONS (5)
  - Off label use [Unknown]
  - Red blood cell abnormality [Unknown]
  - Rhinorrhoea [Unknown]
  - Fatigue [Unknown]
  - White blood cell count abnormal [Unknown]
